FAERS Safety Report 14079780 (Version 3)
Quarter: 2017Q4

REPORT INFORMATION
  Report Type: Report from Study
  Country: US (occurrence: US)
  Receive Date: 20171012
  Receipt Date: 20171121
  Transmission Date: 20180321
  Serious: Yes (Hospitalization, Other)
  Sender: FDA-Public Use
  Company Number: US-JNJFOC-20170904182

PATIENT
  Age: 73 Year
  Sex: Female

DRUGS (13)
  1. IMBRUVICA [Suspect]
     Active Substance: IBRUTINIB
     Indication: WALDENSTROM^S MACROGLOBULINAEMIA
     Route: 048
     Dates: start: 20170907, end: 201710
  2. TRADJENTA [Concomitant]
     Active Substance: LINAGLIPTIN
  3. IMBRUVICA [Suspect]
     Active Substance: IBRUTINIB
     Indication: WALDENSTROM^S MACROGLOBULINAEMIA
     Route: 048
     Dates: start: 20170807
  4. LOVASTATIN. [Concomitant]
     Active Substance: LOVASTATIN
  5. IMBRUVICA [Suspect]
     Active Substance: IBRUTINIB
     Indication: WALDENSTROM^S MACROGLOBULINAEMIA
     Route: 048
  6. DOXAZOSIN [Concomitant]
     Active Substance: DOXAZOSIN\DOXAZOSIN MESYLATE
  7. FOLIC ACID. [Concomitant]
     Active Substance: FOLIC ACID
  8. INDAPAMIDE. [Concomitant]
     Active Substance: INDAPAMIDE
  9. DOXYCYCLINE. [Concomitant]
     Active Substance: DOXYCYCLINE
  10. FLUOXETINE [Concomitant]
     Active Substance: FLUOXETINE HYDROCHLORIDE
  11. IMDUR [Concomitant]
     Active Substance: ISOSORBIDE MONONITRATE
  12. POTASSIUM [Concomitant]
     Active Substance: POTASSIUM
  13. PRILOSEC [Concomitant]
     Active Substance: OMEPRAZOLE MAGNESIUM

REACTIONS (10)
  - Tricuspid valve incompetence [Unknown]
  - Adverse drug reaction [Unknown]
  - Increased tendency to bruise [Unknown]
  - Blister rupture [Recovered/Resolved]
  - Diarrhoea [Unknown]
  - Blister infected [Recovered/Resolved]
  - Mitral valve incompetence [Unknown]
  - Abdominal discomfort [Unknown]
  - Pulmonary hypertension [Unknown]
  - Contusion [Not Recovered/Not Resolved]

NARRATIVE: CASE EVENT DATE: 20170923
